FAERS Safety Report 8216214-9 (Version None)
Quarter: 2012Q1

REPORT INFORMATION
  Report Type: 
  Country: None (occurrence: None)
  Receive Date: 20120316
  Receipt Date: 20120308
  Transmission Date: 20120608
  Serious: Yes (Other)
  Sender: FDA-Public Use
  Company Number: ZA-GLAXOSMITHKLINE-B0787253A

PATIENT
  Sex: Female

DRUGS (1)
  1. ATOVAQUONE [Suspect]
     Indication: MALARIA PROPHYLAXIS
     Dosage: 1TAB PER DAY
     Route: 065

REACTIONS (2)
  - PSYCHOTIC DISORDER [None]
  - DEPRESSION [None]
